FAERS Safety Report 11659118 (Version 1)
Quarter: 2015Q4

REPORT INFORMATION
  Report Type: Spontaneous
  Country: IR (occurrence: IR)
  Receive Date: 20151026
  Receipt Date: 20151026
  Transmission Date: 20160304
  Serious: Yes (Other)
  Sender: FDA-Public Use
  Company Number: IR-ROCHE-1649128

PATIENT
  Age: 52 Year
  Sex: Male

DRUGS (5)
  1. IRINOTECAN [Suspect]
     Active Substance: IRINOTECAN
     Indication: ADENOCARCINOMA OF COLON
     Route: 065
  2. XELODA [Suspect]
     Active Substance: CAPECITABINE
     Dosage: 1000 MG/M TWICE DAILY ON DAY 1 -14 CAPECITABINE IN COMBINATION WITH BEVACIZUMAB.
     Route: 048
  3. BEVACIZUMAB [Suspect]
     Active Substance: BEVACIZUMAB
     Indication: ADENOCARCINOMA OF COLON
     Dosage: GIVEN EVERY 3 WEEKS FOR 8 MONTHS
     Route: 042
  4. XELODA [Suspect]
     Active Substance: CAPECITABINE
     Indication: ADENOCARCINOMA OF COLON
     Dosage: 1000 MG/M TWICE DAILY ON DAY 1 EVENING TO DAY 15 MORNING WITH OXALIPLATIN
     Route: 048
  5. OXALIPLATIN. [Suspect]
     Active Substance: OXALIPLATIN
     Indication: ADENOCARCINOMA OF COLON
     Dosage: 130 MG/M
     Route: 042

REACTIONS (2)
  - Diarrhoea [Unknown]
  - Chronic myeloid leukaemia [Recovering/Resolving]
